FAERS Safety Report 26096612 (Version 2)
Quarter: 2025Q4

REPORT INFORMATION
  Report Type: Report from Study
  Country: US (occurrence: US)
  Receive Date: 20251127
  Receipt Date: 20251204
  Transmission Date: 20260118
  Serious: Yes (Death)
  Sender: ROCHE
  Company Number: US-ROCHE-10000442902

PATIENT
  Age: 75 Year
  Sex: Female

DRUGS (7)
  1. AVASTIN [Suspect]
     Active Substance: BEVACIZUMAB
     Indication: Meningioma
     Dosage: INFUSE 600MG INTRAVENOUSLY EVERY 14 DAY(S)
     Route: 042
     Dates: end: 20241019
  2. AVASTIN [Suspect]
     Active Substance: BEVACIZUMAB
     Indication: Meningioma benign
     Dosage: INFUSE 600MG INTRAVENOUSLY EVERY 14 DAY(S)
     Route: 042
  3. AVASTIN [Suspect]
     Active Substance: BEVACIZUMAB
     Indication: Brain neoplasm malignant
  4. AVASTIN [Suspect]
     Active Substance: BEVACIZUMAB
     Indication: Neoplasm
  5. GABAPENTIN [Concomitant]
     Active Substance: GABAPENTIN
  6. APIXABAN [Concomitant]
     Active Substance: APIXABAN
  7. SIMVASTATIN [Concomitant]
     Active Substance: SIMVASTATIN

REACTIONS (2)
  - Off label use [Unknown]
  - Death [Fatal]

NARRATIVE: CASE EVENT DATE: 20241003
